FAERS Safety Report 22596393 (Version 2)
Quarter: 2023Q2

REPORT INFORMATION
  Report Type: Spontaneous
  Country: BG (occurrence: BG)
  Receive Date: 20230613
  Receipt Date: 20230618
  Transmission Date: 20230722
  Serious: Yes (Other)
  Sender: FDA-Public Use
  Company Number: BG-PFIZER INC-PV202300096612

PATIENT
  Age: 70 Year
  Sex: Female

DRUGS (3)
  1. XGEVA [Suspect]
     Active Substance: DENOSUMAB
     Indication: Breast cancer metastatic
     Dosage: 120 MILLIGRAM
     Route: 058
     Dates: start: 202107
  2. PALBOCICLIB [Suspect]
     Active Substance: PALBOCICLIB
     Indication: Breast cancer metastatic
     Dosage: 125 MILLIGRAM
     Route: 065
     Dates: start: 202107
  3. FEMARA [Suspect]
     Active Substance: LETROZOLE
     Indication: Breast cancer metastatic
     Dosage: 2.5 MILLIGRAM
     Route: 048
     Dates: start: 202107

REACTIONS (3)
  - Neutropenia [Unknown]
  - Eastern Cooperative Oncology Group performance status worsened [Unknown]
  - Pain [Unknown]
